FAERS Safety Report 17222289 (Version 1)
Quarter: 2020Q1

REPORT INFORMATION
  Report Type: Spontaneous
  Country: US (occurrence: US)
  Receive Date: 20191231
  Receipt Date: 20191231
  Transmission Date: 20200409
  Serious: Yes (Other)
  Sender: FDA-Public Use
  Company Number: None

PATIENT
  Age: 39 Year
  Sex: Female

DRUGS (6)
  1. MULTI TAB FOR HER [Concomitant]
     Dates: start: 20090324
  2. ORTHO TRI-TAB CYCLN LO [Concomitant]
     Dates: start: 19900101
  3. SILDENAFIL. [Suspect]
     Active Substance: SILDENAFIL
     Route: 048
  4. REVATIO [Concomitant]
     Active Substance: SILDENAFIL CITRATE
     Dates: start: 20090324
  5. LOPRESSOR TAB 50MG [Concomitant]
     Dates: start: 19900101
  6. ASPIRIN CHW 81MG [Concomitant]
     Dates: start: 19900101

REACTIONS (1)
  - Palpitations [None]

NARRATIVE: CASE EVENT DATE: 20191230
